FAERS Safety Report 10668290 (Version 10)
Quarter: 2015Q3

REPORT INFORMATION
  Report Type: Report from Study
  Country: US (occurrence: US)
  Receive Date: 20141222
  Receipt Date: 20150908
  Transmission Date: 20151125
  Serious: Yes (Other)
  Sender: FDA-Public Use
  Company Number: US-MERCK-1412USA008842

PATIENT
  Age: 79 Year
  Sex: Male
  Weight: 73.12 kg

DRUGS (15)
  1. IBUPROFEN. [Concomitant]
     Active Substance: IBUPROFEN
     Indication: ARTHRALGIA
  2. ATARAX [Concomitant]
     Active Substance: HYDROXYZINE\HYDROXYZINE HYDROCHLORIDE
     Indication: PRURITUS
     Dosage: 25 MG, QD
     Route: 048
     Dates: start: 20141119, end: 20150128
  3. TYLENOL [Concomitant]
     Active Substance: ACETAMINOPHEN
     Indication: MYALGIA
  4. TYLENOL [Concomitant]
     Active Substance: ACETAMINOPHEN
     Indication: ARTHRALGIA
  5. PREVACID [Concomitant]
     Active Substance: LANSOPRAZOLE
     Indication: GASTROOESOPHAGEAL REFLUX DISEASE
     Dosage: 30 MG, QD
     Route: 048
     Dates: start: 200701
  6. PEPCID [Concomitant]
     Active Substance: FAMOTIDINE
     Indication: GASTROOESOPHAGEAL REFLUX DISEASE
     Dosage: 20 MG, QD
     Route: 048
     Dates: start: 20141017
  7. TYLENOL [Concomitant]
     Active Substance: ACETAMINOPHEN
     Indication: TENSION HEADACHE
     Dosage: DAILY DOSE 500 ML, FREQUENCY: OTHER
     Route: 048
     Dates: start: 195101, end: 20141201
  8. FLOMAX [Concomitant]
     Active Substance: TAMSULOSIN HYDROCHLORIDE
     Indication: BENIGN PROSTATIC HYPERPLASIA
     Dosage: 0.4 MG, QD
     Route: 048
     Dates: start: 201211
  9. METOPROLOL [Concomitant]
     Active Substance: METOPROLOL
     Indication: HYPERTENSION
     Dosage: 50 MG, BID
     Route: 048
     Dates: start: 200101
  10. PEMBROLIZUMAB. [Suspect]
     Active Substance: PEMBROLIZUMAB
     Indication: MALIGNANT MELANOMA
     Dosage: 10 MG/KG, Q3W
     Route: 042
     Dates: start: 20131205, end: 20141106
  11. IBUPROFEN. [Concomitant]
     Active Substance: IBUPROFEN
     Indication: TENSION HEADACHE
     Dosage: DAILY DOSE 200 MG, FREQUENCY: OTHER
     Route: 048
     Dates: start: 199801, end: 20141201
  12. PEMBROLIZUMAB. [Suspect]
     Active Substance: PEMBROLIZUMAB
     Dosage: 10 MG/KG, Q3W
     Route: 042
     Dates: start: 20141126, end: 20141126
  13. BENADRYL [Concomitant]
     Active Substance: DIPHENHYDRAMINE HYDROCHLORIDE
     Indication: RHINITIS ALLERGIC
     Dosage: DAILY DOSE 25 MG, PRN
     Route: 048
     Dates: start: 195801
  14. IBUPROFEN. [Concomitant]
     Active Substance: IBUPROFEN
     Indication: MYALGIA
  15. GAVISCON LIQUID ANTACID [Concomitant]
     Indication: GASTROOESOPHAGEAL REFLUX DISEASE
     Dosage: 15 ML, QD
     Route: 048
     Dates: start: 20141017

REACTIONS (1)
  - Pemphigoid [Recovered/Resolved]

NARRATIVE: CASE EVENT DATE: 20141129
